FAERS Safety Report 11993307 (Version 2)
Quarter: 2016Q3

REPORT INFORMATION
  Report Type: Report from Study
  Country: AT (occurrence: AT)
  Receive Date: 20160203
  Receipt Date: 20160927
  Transmission Date: 20161109
  Serious: Yes (Hospitalization, Other)
  Sender: FDA-Public Use
  Company Number: PHHY2015AT125687

PATIENT
  Sex: Female
  Weight: 68.5 kg

DRUGS (11)
  1. THYREX [Concomitant]
     Active Substance: LEVOTHYROXINE SODIUM
     Indication: HYPOTHYROIDISM
     Dosage: 100 UG, QD
     Route: 048
     Dates: start: 200907
  2. VOTRIENT [Suspect]
     Active Substance: PAZOPANIB HYDROCHLORIDE
     Indication: METASTATIC RENAL CELL CARCINOMA
     Dosage: 800 MG, QD
     Route: 065
     Dates: start: 20140808, end: 20140916
  3. VOTRIENT [Suspect]
     Active Substance: PAZOPANIB HYDROCHLORIDE
     Dosage: 600 MG, QD
     Route: 065
     Dates: start: 20140917, end: 20141207
  4. PRAMIPEXOLE. [Concomitant]
     Active Substance: PRAMIPEXOLE
     Indication: PRODUCT USED FOR UNKNOWN INDICATION
     Dosage: UNK
     Route: 048
     Dates: start: 201412
  5. PURINOL                            /03043401/ [Concomitant]
     Indication: HYPERURICAEMIA
     Dosage: 300 MG, QD
     Route: 048
     Dates: start: 201412
  6. PANTOLOC//PANTOPRAZOLE SODIUM SESQUIHYDRATE [Concomitant]
     Active Substance: PANTOPRAZOLE SODIUM
     Indication: PRODUCT USED FOR UNKNOWN INDICATION
     Dosage: 40 MG, QD
     Route: 048
     Dates: start: 200901
  7. TRITTICO [Concomitant]
     Active Substance: TRAZODONE HYDROCHLORIDE
     Indication: INSOMNIA
     Dosage: 150 MG, QD
     Route: 048
     Dates: start: 200912
  8. BLOPRESS [Concomitant]
     Active Substance: CANDESARTAN CILEXETIL
     Indication: HYPERTENSION
     Dosage: 16 MG, QD
     Route: 048
  9. ZANIDIP [Concomitant]
     Active Substance: LERCANIDIPINE HYDROCHLORIDE
     Indication: HYPERTENSION
     Dosage: 10 MG, BID
     Route: 048
     Dates: start: 201406
  10. VOTRIENT [Suspect]
     Active Substance: PAZOPANIB HYDROCHLORIDE
     Dosage: 600 MG, QD
     Route: 065
     Dates: start: 20141220
  11. METOPROLOL. [Concomitant]
     Active Substance: METOPROLOL
     Indication: HYPERTENSION
     Dosage: 25 MG, QD
     Route: 048
     Dates: start: 201412

REACTIONS (33)
  - Pallor [Unknown]
  - Diarrhoea [Recovered/Resolved]
  - Scar [Unknown]
  - Atrioventricular block first degree [Unknown]
  - Vomiting [Unknown]
  - General physical health deterioration [Unknown]
  - Gastroenteritis [Recovered/Resolved]
  - Pancreatic atrophy [Unknown]
  - Adrenal adenoma [Unknown]
  - Blood urea increased [Unknown]
  - Headache [Unknown]
  - Thirst decreased [Unknown]
  - Abdominal pain [Recovering/Resolving]
  - Dry skin [Unknown]
  - Musculoskeletal disorder [Unknown]
  - Eosinophil count increased [Unknown]
  - White blood cell count decreased [Unknown]
  - Blood pressure increased [Unknown]
  - Intervertebral disc degeneration [Unknown]
  - Blood uric acid increased [Unknown]
  - Glomerular filtration rate decreased [Unknown]
  - Electrocardiogram QRS complex prolonged [Unknown]
  - Dyspnoea [Unknown]
  - Skin warm [Unknown]
  - Aspartate aminotransferase decreased [Unknown]
  - Osteochondrosis [Unknown]
  - Scoliosis [Unknown]
  - Abdominal discomfort [Unknown]
  - Blood triglycerides increased [Unknown]
  - Nausea [Unknown]
  - Decreased appetite [Unknown]
  - Lipomatosis [Unknown]
  - Activated partial thromboplastin time prolonged [Unknown]

NARRATIVE: CASE EVENT DATE: 201408
